FAERS Safety Report 5633022-3 (Version None)
Quarter: 2008Q1

REPORT INFORMATION
  Report Type: 
  Country: None (occurrence: None)
  Receive Date: 20080214
  Receipt Date: 20080206
  Transmission Date: 20080703
  Serious: Yes (Hospitalization)
  Sender: FDA-Public Use
  Company Number: 229-C5013-07081217

PATIENT
  Age: 76 Year
  Sex: Female

DRUGS (10)
  1. CC-5013 (LENALIDOMIDE)(CAPSULES) [Suspect]
     Indication: MULTIPLE MYELOMA
     Dosage: 25 MG, DAILY, ORAL; 15 MG, OD, ORAL
     Route: 046
     Dates: start: 20070511, end: 20070821
  2. CC-5013 (LENALIDOMIDE)(CAPSULES) [Suspect]
     Indication: MULTIPLE MYELOMA
     Dosage: 25 MG, DAILY, ORAL; 15 MG, OD, ORAL
     Route: 046
     Dates: start: 20070913, end: 20071025
  3. DEXAMETHASONE TAB [Suspect]
     Indication: MULTIPLE MYELOMA
     Dosage: 20 MG, DAILY X4 DAYS EVERY 2 WEEKS, ORAL
     Route: 048
     Dates: start: 20070511, end: 20070806
  4. NEORECORMON (EPOETIN BETA) [Suspect]
     Indication: ANAEMIA
     Dosage: 30,000 IU, SUBCUTANEOUS; 30000 IUM, WEEKLY, SUBCUTANEOUS
     Route: 058
     Dates: start: 20070821, end: 20070821
  5. NEORECORMON (EPOETIN BETA) [Suspect]
     Indication: ANAEMIA
     Dosage: 30,000 IU, SUBCUTANEOUS; 30000 IUM, WEEKLY, SUBCUTANEOUS
     Route: 058
     Dates: start: 20070830
  6. LANSOPRAZOLE [Concomitant]
  7. MAXALAN (METOCLOPRAMIDE HYDROCHLORIDE) [Concomitant]
  8. MYCOSTATIN [Concomitant]
  9. CORDOSYL CHLORHEXIDINE GLUCONATE) [Concomitant]
  10. TRANSFUSION (BLOOD TRANSFUSION, AUXILIARY PRODUCTS) [Concomitant]

REACTIONS (15)
  - ANAEMIA [None]
  - BLOOD POTASSIUM DECREASED [None]
  - BLOOD PRESSURE DECREASED [None]
  - CONFUSIONAL STATE [None]
  - DEHYDRATION [None]
  - DRY MOUTH [None]
  - DYSPHASIA [None]
  - HYPONATRAEMIA [None]
  - INFLUENZA LIKE ILLNESS [None]
  - LUNG INFILTRATION [None]
  - NEUTROPENIC SEPSIS [None]
  - OEDEMA PERIPHERAL [None]
  - THROMBOCYTOPENIA [None]
  - UPPER RESPIRATORY TRACT INFECTION [None]
  - WHITE BLOOD CELL COUNT DECREASED [None]
